FAERS Safety Report 17307576 (Version 3)
Quarter: 2020Q1

REPORT INFORMATION
  Report Type: Spontaneous
  Country: GR (occurrence: GR)
  Receive Date: 20200123
  Receipt Date: 20200310
  Transmission Date: 20200409
  Serious: Yes (Death, Hospitalization)
  Sender: FDA-Public Use
  Company Number: GR-MYLANLABS-2020M1006694

PATIENT
  Age: 80 Year
  Sex: Male

DRUGS (9)
  1. FUROSEMIDE. [Concomitant]
     Active Substance: FUROSEMIDE
     Indication: PRODUCT USED FOR UNKNOWN INDICATION
     Dosage: UNK
     Route: 065
  2. BENDROFLUAZIDE [Concomitant]
     Active Substance: BENDROFLUMETHIAZIDE
     Indication: PRODUCT USED FOR UNKNOWN INDICATION
     Dosage: UNK
     Route: 065
  3. CORTISONE                          /00014602/ [Suspect]
     Active Substance: CORTISONE ACETATE
     Indication: COLITIS
     Dosage: UNK
     Route: 065
  4. APIXABAN [Concomitant]
     Active Substance: APIXABAN
     Indication: PRODUCT USED FOR UNKNOWN INDICATION
     Dosage: UNK
     Route: 065
  5. SACUBITRIL W/VALSARTAN [Suspect]
     Active Substance: SACUBITRIL\VALSARTAN
     Indication: CONGESTIVE CARDIOMYOPATHY
     Dosage: 200 MG, BID
     Route: 065
     Dates: start: 2016
  6. CARVEDILOL. [Concomitant]
     Active Substance: CARVEDILOL
     Indication: PRODUCT USED FOR UNKNOWN INDICATION
     Dosage: UNK
     Route: 065
  7. EPLERENONE. [Suspect]
     Active Substance: EPLERENONE
     Indication: PRODUCT USED FOR UNKNOWN INDICATION
     Dosage: UNK
     Route: 065
  8. CORTISONE                          /00014602/ [Suspect]
     Active Substance: CORTISONE ACETATE
     Indication: DIARRHOEA
  9. INSULIN [Concomitant]
     Active Substance: INSULIN NOS
     Indication: PRODUCT USED FOR UNKNOWN INDICATION
     Dosage: UNK
     Route: 065

REACTIONS (10)
  - Colitis [Recovered/Resolved]
  - Immunosuppression [Fatal]
  - Renal failure [Recovered/Resolved]
  - Product use in unapproved indication [Unknown]
  - Dehydration [Recovered/Resolved]
  - Hypotension [Recovered/Resolved]
  - Device malfunction [Recovered/Resolved]
  - Sepsis [Fatal]
  - Ventricular tachycardia [Recovered/Resolved]
  - Diarrhoea [Recovered/Resolved]
